FAERS Safety Report 19202033 (Version 3)
Quarter: 2021Q3

REPORT INFORMATION
  Report Type: Spontaneous
  Country: DE (occurrence: DE)
  Receive Date: 20210430
  Receipt Date: 20210707
  Transmission Date: 20211014
  Serious: Yes (Other)
  Sender: FDA-Public Use
  Company Number: DE-ASCEND THERAPEUTICS US, LLC-2110072

PATIENT
  Age: 56 Year
  Sex: Female
  Weight: 63 kg

DRUGS (9)
  1. ESTROGEL [Suspect]
     Active Substance: ESTRADIOL
     Indication: MENOPAUSE
     Route: 062
     Dates: start: 201904, end: 202103
  2. VENOSTASIN (AESCULUS HIPPOCASTANUM EXTRACT), UNKNOWN [Concomitant]
     Route: 048
  3. UTROGEST (PROGESTERONE) [Suspect]
     Active Substance: PROGESTERONE
     Route: 048
     Dates: start: 201904, end: 202103
  4. JODID (POTASSIUM IODIDE), UNKNOWN [Concomitant]
     Route: 048
  5. ESTROGEL [Suspect]
     Active Substance: ESTRADIOL
  6. GYNOKADIN DOSIERGEL (ESTRADIOL HEMIHYDRATE)?DAILY DOSE: 2 DF 1/ (INITI [Suspect]
     Active Substance: ESTRADIOL
     Route: 062
     Dates: start: 201904, end: 202103
  7. CLEXANE (ENOXAPARIN SODIUM) [Suspect]
     Active Substance: ENOXAPARIN SODIUM
     Route: 065
     Dates: start: 202104
  8. ESTROGEL [Suspect]
     Active Substance: ESTRADIOL
     Indication: SLEEP DISORDER
     Route: 062
     Dates: start: 201904, end: 202103
  9. UTROGEST (PROGESTERONE) [Suspect]
     Active Substance: PROGESTERONE
     Route: 048
     Dates: start: 201904, end: 202103

REACTIONS (5)
  - Tinnitus [Recovering/Resolving]
  - Sudden hearing loss [Recovered/Resolved]
  - Cardiolipin antibody [Unknown]
  - Therapy cessation [Unknown]
  - Cerebral microangiopathy [Not Recovered/Not Resolved]

NARRATIVE: CASE EVENT DATE: 202103
